FAERS Safety Report 6030706-2 (Version None)
Quarter: 2009Q1

REPORT INFORMATION
  Report Type: 
  Country: None (occurrence: None)
  Receive Date: 20090107
  Receipt Date: 20081223
  Transmission Date: 20090719
  Serious: No
  Sender: FDA-Public Use
  Company Number: US-B.I. PHARMACEUTICALS,INC./RIDGEFIELD-2008-BP-19090BP

PATIENT
  Age: 86 Year
  Sex: Male

DRUGS (1)
  1. SPIRIVA [Suspect]
     Dates: start: 20081212

REACTIONS (2)
  - CONSTIPATION [None]
  - DRY MOUTH [None]
